FAERS Safety Report 21377311 (Version 1)
Quarter: 2022Q3

REPORT INFORMATION
  Report Type: Report from Study
  Country: US (occurrence: US)
  Receive Date: 20220926
  Receipt Date: 20220926
  Transmission Date: 20221027
  Serious: Yes (Hospitalization, Other)
  Sender: FDA-Public Use
  Company Number: US-ABBVIE-4127352

PATIENT
  Sex: Female

DRUGS (1)
  1. ORIAHNN [Suspect]
     Active Substance: ELAGOLIX SODIUM\ESTRADIOL\NORETHINDRONE
     Indication: Heavy menstrual bleeding
     Route: 048

REACTIONS (4)
  - Uterine leiomyoma [Recovering/Resolving]
  - Pain [Unknown]
  - Pyrexia [Unknown]
  - Uterine inflammation [Unknown]
